FAERS Safety Report 10175526 (Version 2)
Quarter: 2014Q2

REPORT INFORMATION
  Report Type: Spontaneous
  Country: FR (occurrence: FR)
  Receive Date: 20140516
  Receipt Date: 20140625
  Transmission Date: 20141212
  Serious: Yes (Hospitalization)
  Sender: FDA-Public Use
  Company Number: FR-AMGEN-FRASP2014035735

PATIENT
  Age: 59 Year
  Sex: Male

DRUGS (18)
  1. ENBREL [Suspect]
     Indication: PRODUCT USED FOR UNKNOWN INDICATION
     Dosage: UNK
     Route: 058
     Dates: start: 20090722
  2. METOJECT [Suspect]
     Indication: PRODUCT USED FOR UNKNOWN INDICATION
     Dosage: UNK
     Route: 058
     Dates: start: 20090722
  3. CORTANCYL [Concomitant]
     Dosage: UNK
  4. BISOPROLOL [Concomitant]
     Dosage: UNK
  5. LEVOTHYROX [Concomitant]
     Dosage: UNK
  6. ACTONEL [Concomitant]
     Dosage: UNK
  7. DAFALGAN [Concomitant]
     Dosage: UNK
  8. LANTUS [Concomitant]
     Dosage: UNK
  9. NOVORAPID [Concomitant]
     Dosage: UNK
  10. PLAVIX [Concomitant]
     Dosage: UNK
  11. IMOVANE [Concomitant]
     Dosage: UNK
  12. CRESTOR [Concomitant]
     Dosage: UNK
  13. THIOCOLCHICOSIDE [Concomitant]
     Dosage: UNK
  14. MACROGOL [Concomitant]
     Dosage: UNK
  15. BIPERIDYS [Concomitant]
     Dosage: UNK UNK, UNK
  16. UROREC [Concomitant]
     Dosage: UNK
  17. RABEPRAZOLE [Concomitant]
     Dosage: UNK
  18. SPECIAFOLDINE [Concomitant]
     Dosage: UNK
     Dates: start: 20090722

REACTIONS (1)
  - Eosinophilia [Recovered/Resolved]
